FAERS Safety Report 4288107-3 (Version None)
Quarter: 2004Q1

REPORT INFORMATION
  Report Type: 
  Country: None (occurrence: None)
  Receive Date: 20040205
  Receipt Date: 20040126
  Transmission Date: 20041129
  Serious: Yes (Other)
  Sender: FDA-Public Use
  Company Number: NO-JNJFOC-20030801524

PATIENT
  Sex: Female

DRUGS (1)
  1. REMICADE [Suspect]
     Indication: PYODERMA GANGRENOSUM
     Dosage: INTRAVENOUS
     Route: 042
     Dates: start: 20020412, end: 20020412

REACTIONS (4)
  - HEPATIC ENZYME INCREASED [None]
  - LEUKOCYTOSIS [None]
  - ORAL CANDIDIASIS [None]
  - SKIN GRAFT [None]
